FAERS Safety Report 19838806 (Version 2)
Quarter: 2021Q3

REPORT INFORMATION
  Report Type: Report from Study
  Country: PA (occurrence: PA)
  Receive Date: 20210916
  Receipt Date: 20210927
  Transmission Date: 20211014
  Serious: No
  Sender: FDA-Public Use
  Company Number: NVSC2021PA206323

PATIENT
  Age: 77 Year
  Sex: Female
  Weight: 49.89 kg

DRUGS (3)
  1. KISQALI [Suspect]
     Active Substance: RIBOCICLIB
     Dosage: 3 DF, QD
     Route: 048
     Dates: start: 202012
  2. ANASTROZOLE. [Suspect]
     Active Substance: ANASTROZOLE
     Indication: PRODUCT USED FOR UNKNOWN INDICATION
     Dosage: 1 DF, QD (1 OF 1 MG)
     Route: 048
     Dates: start: 202011
  3. KISQALI [Suspect]
     Active Substance: RIBOCICLIB
     Indication: BREAST CANCER METASTATIC
     Dosage: 600 MG, QD
     Route: 048
     Dates: start: 202012

REACTIONS (10)
  - Asthenia [Unknown]
  - Underweight [Unknown]
  - COVID-19 [Unknown]
  - Decreased appetite [Unknown]
  - Body temperature increased [Unknown]
  - Fatigue [Unknown]
  - Haemoglobin abnormal [Unknown]
  - Feeling abnormal [Unknown]
  - Blood calcium decreased [Unknown]
  - Urinary tract infection [Unknown]

NARRATIVE: CASE EVENT DATE: 20210903
